FAERS Safety Report 12499276 (Version 4)
Quarter: 2016Q3

REPORT INFORMATION
  Report Type: Report from Study
  Country: EG (occurrence: EG)
  Receive Date: 20160627
  Receipt Date: 20160722
  Transmission Date: 20161109
  Serious: Yes (Hospitalization)
  Sender: FDA-Public Use
  Company Number: EG-ROCHE-1759272

PATIENT
  Age: 61 Year
  Sex: Male
  Weight: 84 kg

DRUGS (14)
  1. DEXAMETHASONE. [Concomitant]
     Active Substance: DEXAMETHASONE
     Indication: PREMEDICATION
     Route: 065
     Dates: start: 20160512, end: 20160512
  2. ONDANSETRON [Concomitant]
     Active Substance: ONDANSETRON
     Indication: VOMITING
     Route: 065
     Dates: start: 20160513, end: 20160513
  3. PARACETAMOL [Concomitant]
     Active Substance: ACETAMINOPHEN
     Indication: PYREXIA
     Route: 065
     Dates: start: 20160512, end: 20160512
  4. MICRONIZED PURIFIED FLAVONOID FRACTION [Concomitant]
     Indication: UPPER GASTROINTESTINAL HAEMORRHAGE
     Route: 065
     Dates: start: 20160513, end: 20160513
  5. DEXAMETHASONE. [Concomitant]
     Active Substance: DEXAMETHASONE
     Indication: PREMEDICATION
     Dosage: PREMEDICATION BEFORE CHEMOTHERAPY
     Route: 065
     Dates: start: 20160512, end: 20160512
  6. FLUOROURACIL. [Suspect]
     Active Substance: FLUOROURACIL
     Indication: COLORECTAL CANCER METASTATIC
     Dosage: DATE OF MOST RECENT DOSE PRIOR TO SAE- 12/MAY/2016
     Route: 042
     Dates: start: 20160512
  7. FOLINIC ACID [Suspect]
     Active Substance: LEUCOVORIN
     Indication: COLORECTAL CANCER METASTATIC
     Dosage: DATE OF MOST RECENT DOSE PRIOR TO SAE- 12/MAY/2016
     Route: 042
     Dates: start: 20160512
  8. PARACETAMOL [Concomitant]
     Active Substance: ACETAMINOPHEN
     Route: 065
     Dates: start: 20160513
  9. VITAMIN K [Concomitant]
     Active Substance: PHYTONADIONE
     Indication: UPPER GASTROINTESTINAL HAEMORRHAGE
     Route: 065
     Dates: start: 20160513, end: 20160513
  10. GRANISETRON [Concomitant]
     Active Substance: GRANISETRON
     Indication: PREMEDICATION
     Route: 065
     Dates: start: 20160512, end: 20160512
  11. BEVACIZUMAB [Suspect]
     Active Substance: BEVACIZUMAB
     Indication: COLORECTAL CANCER METASTATIC
     Dosage: DATE OF MOST RECENT DOSE PRIOR TO SAE- 12/MAY/2016
     Route: 042
     Dates: start: 20160512
  12. OXALIPLATIN. [Suspect]
     Active Substance: OXALIPLATIN
     Indication: COLORECTAL CANCER METASTATIC
     Dosage: DATE OF MOST RECENT DOSE PRIOR TO SAE- 12/MAY/2016
     Route: 042
     Dates: start: 20160512
  13. CIPROFLOXACIN. [Concomitant]
     Active Substance: CIPROFLOXACIN
     Indication: PYREXIA
     Route: 065
     Dates: start: 20160513, end: 20160514
  14. VANCOMYCIN [Concomitant]
     Active Substance: VANCOMYCIN
     Indication: PYREXIA
     Route: 065
     Dates: start: 20160523, end: 20160529

REACTIONS (1)
  - Pericarditis [Recovered/Resolved]

NARRATIVE: CASE EVENT DATE: 20160514
